FAERS Safety Report 6713236-1 (Version None)
Quarter: 2010Q2

REPORT INFORMATION
  Report Type: 
  Country: None (occurrence: None)
  Receive Date: 20100506
  Receipt Date: 20100503
  Transmission Date: 20101027
  Serious: Yes (Death, Hospitalization)
  Sender: FDA-Public Use
  Company Number: PHEH2010US02789

PATIENT
  Sex: Female
  Weight: 49.4 kg

DRUGS (2)
  1. EXJADE [Suspect]
     Indication: APLASTIC ANAEMIA
     Dosage: 1000 MG, QD
     Route: 048
     Dates: start: 20090921, end: 20100126
  2. EXJADE [Suspect]
     Indication: IRON OVERLOAD

REACTIONS (2)
  - APLASTIC ANAEMIA [None]
  - DEATH [None]
